FAERS Safety Report 16433719 (Version 2)
Quarter: 2019Q4

REPORT INFORMATION
  Report Type: Spontaneous
  Country: US (occurrence: US)
  Receive Date: 20190614
  Receipt Date: 20191224
  Transmission Date: 20200122
  Serious: No
  Sender: FDA-Public Use
  Company Number: US-JNJFOC-20170314060

PATIENT
  Sex: Male

DRUGS (2)
  1. RISPERDAL M-TAB [Suspect]
     Active Substance: RISPERIDONE
     Indication: AGGRESSION
  2. RISPERDAL M-TAB [Suspect]
     Active Substance: RISPERIDONE
     Indication: IMPULSIVE BEHAVIOUR
     Route: 048
     Dates: start: 20051027, end: 201309

REACTIONS (3)
  - Gynaecomastia [Unknown]
  - Blood prolactin increased [Unknown]
  - Weight increased [Unknown]
